FAERS Safety Report 6372566-6 (Version None)
Quarter: 2009Q3

REPORT INFORMATION
  Report Type: 
  Country: None (occurrence: None)
  Receive Date: 20090924
  Receipt Date: 20080911
  Transmission Date: 20100115
  Serious: No
  Sender: FDA-Public Use
  Company Number: US-ASTRAZENECA-2008UW18864

PATIENT
  Age: 37 Year
  Sex: Female
  Weight: 72.6 kg

DRUGS (5)
  1. SEROQUEL XR [Suspect]
     Indication: BIPOLAR DISORDER
     Route: 048
  2. TRAZODONE HCL [Concomitant]
  3. LEVOTHYROXINE SODIUM [Concomitant]
  4. PROTONICS [Concomitant]
  5. PREMARIN [Concomitant]

REACTIONS (1)
  - DRUG SCREEN POSITIVE [None]
